FAERS Safety Report 8042814-5 (Version None)
Quarter: 2012Q1

REPORT INFORMATION
  Report Type: 
  Country: None (occurrence: None)
  Receive Date: 20120112
  Receipt Date: 20120103
  Transmission Date: 20120608
  Serious: Yes (Hospitalization)
  Sender: FDA-Public Use
  Company Number: US-BAYER-2011-045257

PATIENT
  Age: 45 Year
  Sex: Female
  Weight: 72.562 kg

DRUGS (8)
  1. YASMIN [Suspect]
     Dosage: UNK
     Dates: start: 20061201, end: 20070101
  2. YASMIN [Suspect]
     Dosage: UNK
     Dates: start: 20050601, end: 20050901
  3. YASMIN [Suspect]
     Dosage: UNK
     Dates: start: 20060501, end: 20060901
  4. YASMIN [Suspect]
     Dosage: UNK
     Dates: start: 20070301
  5. YASMIN [Suspect]
     Indication: CONTRACEPTION
     Dosage: UNK
     Dates: start: 20040401, end: 20040601
  6. YASMIN [Suspect]
     Indication: ACNE
     Dosage: UNK
     Dates: start: 20040901, end: 20050101
  7. YASMIN [Suspect]
     Indication: PREMENSTRUAL SYNDROME
     Dosage: UNK
     Dates: start: 20050401
  8. YASMIN [Suspect]
     Dosage: UNK
     Dates: start: 20051101, end: 20060101

REACTIONS (6)
  - EMOTIONAL DISTRESS [None]
  - CHOLECYSTITIS [None]
  - INJURY [None]
  - GENERAL PHYSICAL HEALTH DETERIORATION [None]
  - PAIN [None]
  - ANXIETY [None]
